FAERS Safety Report 12656691 (Version 2)
Quarter: 2016Q4

REPORT INFORMATION
  Report Type: Spontaneous
  Country: US (occurrence: US)
  Receive Date: 20160816
  Receipt Date: 20161004
  Transmission Date: 20170207
  Serious: Yes (Death)
  Sender: FDA-Public Use
  Company Number: US-OTSUKA-2016_019825

PATIENT
  Age: 68 Year
  Sex: Male

DRUGS (1)
  1. SAMSCA [Suspect]
     Active Substance: TOLVAPTAN
     Indication: CARDIAC FAILURE CONGESTIVE
     Dosage: 60 MG, QD (30 MG 2 TABS)
     Route: 048
     Dates: start: 20160413

REACTIONS (2)
  - Cardiac failure congestive [Fatal]
  - Incorrect drug administration duration [Unknown]

NARRATIVE: CASE EVENT DATE: 20160720
